FAERS Safety Report 5793720-8 (Version None)
Quarter: 2008Q2

REPORT INFORMATION
  Report Type: 
  Country: None (occurrence: None)
  Receive Date: 20080627
  Receipt Date: 20080621
  Transmission Date: 20081010
  Serious: Yes (Other)
  Sender: FDA-Public Use
  Company Number: US-PFIZER INC-2008052095

PATIENT
  Sex: Female
  Weight: 47 kg

DRUGS (5)
  1. GEODON [Suspect]
     Indication: BIPOLAR DISORDER
  2. XANAX [Suspect]
  3. ANAFRANIL [Concomitant]
  4. BUSPAR [Concomitant]
  5. KLONOPIN [Concomitant]

REACTIONS (4)
  - BIPOLAR DISORDER [None]
  - INTENTIONAL DRUG MISUSE [None]
  - PANIC ATTACK [None]
  - TREMOR [None]
